FAERS Safety Report 6641439-3 (Version None)
Quarter: 2010Q1

REPORT INFORMATION
  Report Type: 
  Country: None (occurrence: None)
  Receive Date: 20100317
  Receipt Date: 20100317
  Transmission Date: 20100710
  Serious: Yes (Hospitalization)
  Sender: FDA-Public Use
  Company Number: None

PATIENT
  Age: 77 Year
  Sex: Male

DRUGS (1)
  1. ALPROSTADIL [Suspect]
     Indication: ERECTILE DYSFUNCTION
     Dosage: 1000 MCG ONCE OTHER
     Dates: start: 20091116, end: 20091116

REACTIONS (3)
  - BRADYCARDIA [None]
  - DIZZINESS [None]
  - PRESYNCOPE [None]
